FAERS Safety Report 5910844-2 (Version None)
Quarter: 2008Q4

REPORT INFORMATION
  Report Type: 
  Country: None (occurrence: None)
  Receive Date: 20081007
  Receipt Date: 20081003
  Transmission Date: 20090506
  Serious: Yes (Other)
  Sender: FDA-Public Use
  Company Number: US-VALEANT-2008VX001701

PATIENT
  Age: 81 Year
  Sex: Male

DRUGS (1)
  1. EFUDEX [Suspect]
     Indication: SKIN CANCER
     Route: 061
     Dates: start: 20080801, end: 20080801

REACTIONS (1)
  - OPTIC ISCHAEMIC NEUROPATHY [None]
